FAERS Safety Report 12640714 (Version 1)
Quarter: 2016Q3

REPORT INFORMATION
  Report Type: Spontaneous
  Country: US (occurrence: US)
  Receive Date: 20160810
  Receipt Date: 20160810
  Transmission Date: 20161109
  Serious: No
  Sender: FDA-Public Use
  Company Number: US-BEH-2016072082

PATIENT
  Age: 12 Year
  Sex: Male
  Weight: 34.47 kg

DRUGS (31)
  1. HIZENTRA [Suspect]
     Active Substance: HUMAN IMMUNOGLOBULIN G
     Indication: IMMUNODEFICIENCY COMMON VARIABLE
     Route: 058
  2. PREDNISONE. [Concomitant]
     Active Substance: PREDNISONE
  3. URSODIOL. [Concomitant]
     Active Substance: URSODIOL
  4. KLOR-CON [Concomitant]
     Active Substance: POTASSIUM CHLORIDE
  5. LIDOCAINE. [Concomitant]
     Active Substance: LIDOCAINE
  6. SODIUM CHLORIDE. [Concomitant]
     Active Substance: SODIUM CHLORIDE
  7. MULTIVITAMINS [Concomitant]
     Active Substance: VITAMINS
  8. LOPRESSOR [Concomitant]
     Active Substance: METOPROLOL TARTRATE
  9. OMEPRAZOLE/SODIUM BICARBONATE [Concomitant]
     Active Substance: OMEPRAZOLE\SODIUM BICARBONATE
  10. ACETAMINOPHEN. [Concomitant]
     Active Substance: ACETAMINOPHEN
  11. DIPHENHYDRAMINE. [Concomitant]
     Active Substance: DIPHENHYDRAMINE
  12. HEPARIN [Concomitant]
     Active Substance: HEPARIN SODIUM
  13. STERILE WATER [Concomitant]
     Active Substance: WATER
  14. AZITHROMYCIN ANHYDROUS. [Concomitant]
     Active Substance: AZITHROMYCIN ANHYDROUS
  15. FERROUS SULFATE. [Concomitant]
     Active Substance: FERROUS SULFATE
  16. MAGNESIUM [Concomitant]
     Active Substance: MAGNESIUM
  17. MYCOPHENOLATE MOFETIL. [Concomitant]
     Active Substance: MYCOPHENOLATE MOFETIL
  18. ATORVASTATIN [Concomitant]
     Active Substance: ATORVASTATIN
  19. HIZENTRA [Suspect]
     Active Substance: HUMAN IMMUNOGLOBULIN G
     Dosage: UNK
     Route: 058
  20. TACROLIMUS. [Concomitant]
     Active Substance: TACROLIMUS
  21. POLYETHYLENE GLYCOL [Concomitant]
     Active Substance: POLYETHYLENE GLYCOLS
  22. GABAPENTIN. [Concomitant]
     Active Substance: GABAPENTIN
  23. VALGANCICLOVIR. [Concomitant]
     Active Substance: VALGANCICLOVIR
  24. VORICONAZOLE. [Concomitant]
     Active Substance: VORICONAZOLE
  25. MELATONINA + B6 [Concomitant]
  26. EPIPEN JR [Concomitant]
     Active Substance: EPINEPHRINE
  27. SERTRALINE [Concomitant]
     Active Substance: SERTRALINE HYDROCHLORIDE
  28. CHOLECALCIFEROL [Concomitant]
     Active Substance: CHOLECALCIFEROL
  29. HIZENTRA [Suspect]
     Active Substance: HUMAN IMMUNOGLOBULIN G
     Dosage: 5 G, QW
     Route: 058
  30. NORVASC [Concomitant]
     Active Substance: AMLODIPINE BESYLATE
  31. BACTRIM DS [Concomitant]
     Active Substance: SULFAMETHOXAZOLE\TRIMETHOPRIM

REACTIONS (1)
  - Administration site pain [Unknown]

NARRATIVE: CASE EVENT DATE: 20160404
